FAERS Safety Report 7243694-8 (Version None)
Quarter: 2011Q1

REPORT INFORMATION
  Report Type: 
  Country: None (occurrence: None)
  Receive Date: 20110125
  Receipt Date: 20110119
  Transmission Date: 20110831
  Serious: No
  Sender: FDA-Public Use
  Company Number: US-PFIZER INC-2011013290

PATIENT
  Sex: Female
  Weight: 90.703 kg

DRUGS (3)
  1. MICROGESTIN 1.5/30 [Suspect]
  2. KARIVA [Suspect]
  3. DEPO-PROVERA [Suspect]

REACTIONS (2)
  - MALAISE [None]
  - VERTIGO [None]
